FAERS Safety Report 9979530 (Version 1)
Quarter: 2014Q1

REPORT INFORMATION
  Report Type: Report from Study
  Country: US (occurrence: US)
  Receive Date: 20140306
  Receipt Date: 20140306
  Transmission Date: 20141002
  Serious: No
  Sender: FDA-Public Use
  Company Number: US-ABBVIE-13P-163-1172910-00

PATIENT
  Age: 37 Year
  Sex: Male
  Weight: 77.18 kg

DRUGS (6)
  1. HUMIRA [Suspect]
     Indication: CROHN^S DISEASE
     Dosage: ONE TIME DOSE
     Route: 058
     Dates: start: 20130604, end: 20130604
  2. HUMIRA [Suspect]
     Dosage: ONE TIME DOSE
     Route: 058
     Dates: start: 20130618, end: 20130618
  3. HUMIRA [Suspect]
     Route: 058
     Dates: start: 20130702
  4. MERCAPTOPURINE [Concomitant]
     Indication: PRODUCT USED FOR UNKNOWN INDICATION
  5. ZOFRAN [Concomitant]
     Indication: NAUSEA
  6. TYLENOL WITH CODEINE NO.3 [Concomitant]
     Indication: PAIN

REACTIONS (2)
  - Sneezing [Recovering/Resolving]
  - Cough [Recovering/Resolving]
